FAERS Safety Report 9312229 (Version 2)
Quarter: 2013Q2

REPORT INFORMATION
  Report Type: Spontaneous
  Country: US (occurrence: US)
  Receive Date: 20130528
  Receipt Date: 20130617
  Transmission Date: 20140414
  Serious: Yes (Other)
  Sender: FDA-Public Use
  Company Number: US-BAYER-2013-064580

PATIENT
  Age: 36 Year
  Sex: Female

DRUGS (1)
  1. BETASERON [Suspect]
     Indication: MULTIPLE SCLEROSIS
     Dosage: 8 MIU, QOD
     Route: 058
     Dates: start: 20110917

REACTIONS (5)
  - Injection site infection [Recovered/Resolved]
  - Injection site infection [Recovered/Resolved]
  - Migraine [None]
  - Skin infection [Recovered/Resolved]
  - Gallbladder disorder [Recovering/Resolving]
